FAERS Safety Report 5680203-9 (Version None)
Quarter: 2008Q1

REPORT INFORMATION
  Report Type: 
  Country: None (occurrence: None)
  Receive Date: 20080326
  Receipt Date: 20080317
  Transmission Date: 20080703
  Serious: Yes (Death, Hospitalization)
  Sender: FDA-Public Use
  Company Number: PHBS2008US03525

PATIENT
  Age: 33 Year
  Sex: Male

DRUGS (7)
  1. CYCLOSPORINE [Suspect]
     Indication: RENAL TRANSPLANT
  2. AZATHIOPRINE [Suspect]
     Indication: RENAL TRANSPLANT
  3. PREDNISONE TAB [Suspect]
     Indication: RENAL TRANSPLANT
  4. LANSOPRAZOLE [Concomitant]
  5. FLUOXETINE [Concomitant]
  6. SIMVASTATIN [Concomitant]
  7. CYTARABINE [Concomitant]

REACTIONS (29)
  - ABDOMINAL PAIN [None]
  - ANOREXIA [None]
  - ASCITES [None]
  - BLOOD CREATININE INCREASED [None]
  - BLOOD UREA INCREASED [None]
  - CHILLS [None]
  - COUGH [None]
  - DYSPNOEA [None]
  - EPIGASTRIC DISCOMFORT [None]
  - GALLBLADDER DISORDER [None]
  - HAEMATOCRIT DECREASED [None]
  - HAEMOGLOBIN DECREASED [None]
  - HEPATOSPLENIC T-CELL LYMPHOMA [None]
  - HEPATOSPLENOMEGALY [None]
  - HYPOTENSION [None]
  - HYPOXIA [None]
  - INFLAMMATION [None]
  - LEUKOPENIA [None]
  - LOCALISED OEDEMA [None]
  - LYMPHOCYTE COUNT DECREASED [None]
  - MALAISE [None]
  - MYALGIA [None]
  - NAUSEA [None]
  - NEUTROPHIL COUNT DECREASED [None]
  - PANCYTOPENIA [None]
  - PLATELET COUNT DECREASED [None]
  - PNEUMONIA [None]
  - PYREXIA [None]
  - RETICULOCYTE COUNT INCREASED [None]
